FAERS Safety Report 7995422-6 (Version None)
Quarter: 2011Q4

REPORT INFORMATION
  Report Type: 
  Country: None (occurrence: None)
  Receive Date: 20111220
  Receipt Date: 20111214
  Transmission Date: 20120403
  Serious: Yes (Hospitalization, Other)
  Sender: FDA-Public Use
  Company Number: DK-PFIZER INC-2011187630

PATIENT
  Age: 46 Year
  Sex: Male

DRUGS (1)
  1. ZIPRASIDONE HYDROCHLORIDE [Suspect]
     Indication: SCHIZOPHRENIA
     Dosage: UNK
     Dates: start: 20020101, end: 20070901

REACTIONS (9)
  - DIABETIC KETOACIDOSIS [None]
  - ENTEROSTOMY [None]
  - HYPERLIPIDAEMIA [None]
  - PANCREATITIS [None]
  - ABDOMINAL HERNIA [None]
  - CHOLECYSTECTOMY [None]
  - COLECTOMY [None]
  - PANCREATECTOMY [None]
  - DIABETES MELLITUS [None]
